FAERS Safety Report 25242740 (Version 1)
Quarter: 2025Q2

REPORT INFORMATION
  Report Type: Report from Study
  Country: JP (occurrence: JP)
  Receive Date: 20250427
  Receipt Date: 20250427
  Transmission Date: 20250717
  Serious: Yes (Death, Other)
  Sender: ABBVIE
  Company Number: JP-TAKEDA-2018TJP004162

PATIENT
  Age: 67 Year
  Sex: Male

DRUGS (1)
  1. LEUPROLIDE ACETATE [Suspect]
     Active Substance: LEUPROLIDE ACETATE
     Indication: Bulbospinal muscular atrophy congenital
     Dosage: 11.25 MG, Q3MONTHS
     Route: 058
     Dates: start: 20180129, end: 20230724

REACTIONS (2)
  - Aortic dissection [Fatal]
  - Laryngeal granuloma [Unknown]

NARRATIVE: CASE EVENT DATE: 20180101
